FAERS Safety Report 19367482 (Version 11)
Quarter: 2023Q1

REPORT INFORMATION
  Report Type: Report from Study
  Country: CA (occurrence: CA)
  Receive Date: 20210603
  Receipt Date: 20230217
  Transmission Date: 20230417
  Serious: Yes (Other)
  Sender: FDA-Public Use
  Company Number: CA-TAKEDA-2020TUS053772

PATIENT
  Age: 60 Year
  Sex: Male

DRUGS (31)
  1. TEDUGLUTIDE [Suspect]
     Active Substance: TEDUGLUTIDE
     Indication: Short-bowel syndrome
     Dosage: 3.58 MILLIGRAM
     Route: 065
     Dates: start: 20170319
  2. TEDUGLUTIDE [Suspect]
     Active Substance: TEDUGLUTIDE
     Indication: Short-bowel syndrome
     Dosage: 3.58 MILLIGRAM
     Route: 065
     Dates: start: 20170319
  3. TEDUGLUTIDE [Suspect]
     Active Substance: TEDUGLUTIDE
     Indication: Short-bowel syndrome
     Dosage: 3.58 MILLIGRAM
     Route: 065
     Dates: start: 20170319
  4. TEDUGLUTIDE [Suspect]
     Active Substance: TEDUGLUTIDE
     Indication: Short-bowel syndrome
     Dosage: 3.58 MILLIGRAM
     Route: 065
     Dates: start: 20170319
  5. TEDUGLUTIDE [Suspect]
     Active Substance: TEDUGLUTIDE
     Dosage: 3.58 MILLIGRAM, QD
     Route: 058
     Dates: start: 20170419
  6. TEDUGLUTIDE [Suspect]
     Active Substance: TEDUGLUTIDE
     Dosage: 3.58 MILLIGRAM, QD
     Route: 058
     Dates: start: 20170419
  7. TEDUGLUTIDE [Suspect]
     Active Substance: TEDUGLUTIDE
     Dosage: 3.58 MILLIGRAM, QD
     Route: 058
     Dates: start: 20170419
  8. TEDUGLUTIDE [Suspect]
     Active Substance: TEDUGLUTIDE
     Dosage: 3.58 MILLIGRAM, QD
     Route: 058
     Dates: start: 20170419
  9. TEDUGLUTIDE [Suspect]
     Active Substance: TEDUGLUTIDE
     Dosage: 3.58 MILLIGRAM, QD
     Route: 050
     Dates: start: 20170419
  10. TEDUGLUTIDE [Suspect]
     Active Substance: TEDUGLUTIDE
     Dosage: 3.58 MILLIGRAM, QD
     Route: 050
     Dates: start: 20170419
  11. TEDUGLUTIDE [Suspect]
     Active Substance: TEDUGLUTIDE
     Dosage: 3.58 MILLIGRAM, QD
     Route: 050
     Dates: start: 20170419
  12. TEDUGLUTIDE [Suspect]
     Active Substance: TEDUGLUTIDE
     Dosage: 3.58 MILLIGRAM, QD
     Route: 050
     Dates: start: 20170419
  13. VITAMIN B12 [Concomitant]
     Active Substance: CYANOCOBALAMIN
     Dosage: UNK, MONTHLY
     Route: 065
  14. CANNABIS SATIVA SUBSP. INDICA TOP [Concomitant]
     Active Substance: CANNABIS SATIVA SUBSP. INDICA TOP
     Dosage: UNK UNK, QD
     Route: 065
  15. CANNABIS SATIVA SUBSP. INDICA TOP [Concomitant]
     Active Substance: CANNABIS SATIVA SUBSP. INDICA TOP
     Dosage: 0.5 GRAM, QD
     Route: 065
  16. COLESEVELAM HYDROCHLORIDE [Concomitant]
     Active Substance: COLESEVELAM HYDROCHLORIDE
     Dosage: 625 MILLIGRAM, BID
     Route: 065
     Dates: start: 20200317
  17. COLESEVELAM HYDROCHLORIDE [Concomitant]
     Active Substance: COLESEVELAM HYDROCHLORIDE
     Dosage: 1250 MILLIGRAM, BID
  18. LOMOTIL [Concomitant]
     Active Substance: ATROPINE SULFATE\DIPHENOXYLATE HYDROCHLORIDE
     Dosage: 2 DOSAGE FORM, BID
     Route: 048
     Dates: start: 201709
  19. SALT [Concomitant]
     Active Substance: SODIUM CHLORIDE
     Dosage: 1 DOSAGE FORM, QID
     Route: 048
  20. JUBLIA [Concomitant]
     Active Substance: EFINACONAZOLE
     Indication: Onychomycosis
     Dosage: UNK
     Route: 065
  21. VITAMIN D NOS [Concomitant]
     Active Substance: VITAMIN D NOS
     Dosage: 1 GTT DROPS, QD
     Route: 048
  22. IMODIUM [Concomitant]
     Active Substance: LOPERAMIDE HYDROCHLORIDE
     Dosage: UNK
     Route: 065
     Dates: start: 20140306, end: 20181001
  23. IMODIUM [Concomitant]
     Active Substance: LOPERAMIDE HYDROCHLORIDE
     Dosage: 2 DOSAGE FORM, BID
     Route: 065
     Dates: start: 201801
  24. VIBERZI [Concomitant]
     Active Substance: ELUXADOLINE
     Dosage: UNK
     Route: 065
     Dates: start: 20180801, end: 20181114
  25. SANDOSTATIN [Concomitant]
     Active Substance: OCTREOTIDE ACETATE
     Dosage: UNK, Q4WEEKS
     Route: 030
     Dates: end: 20191111
  26. CODEINE [Concomitant]
     Active Substance: CODEINE
     Dosage: 30 MILLIGRAM
     Route: 065
     Dates: start: 20181106, end: 20190314
  27. TPN [Concomitant]
     Active Substance: AMINO ACIDS\DEXTROSE\ELECTROLYTES NOS\SOYBEAN OIL
     Dosage: UNK
     Route: 065
     Dates: start: 20140303, end: 20150101
  28. DIGEST ZYMES [Concomitant]
     Dosage: 2 DOSAGE FORM, QID
     Route: 065
  29. LOPERAMIDE HYDROCHLORIDE [Concomitant]
     Active Substance: LOPERAMIDE HYDROCHLORIDE
     Dosage: 0.4 MILLIGRAM, BID
     Route: 065
     Dates: start: 20181126
  30. CHOLESTYRAMINE [Concomitant]
     Active Substance: CHOLESTYRAMINE
     Dosage: UNK
  31. COLESEVELAM [Concomitant]
     Active Substance: COLESEVELAM
     Dosage: UNK

REACTIONS (14)
  - Pharyngeal abscess [Recovered/Resolved]
  - Injection site pain [Unknown]
  - Dysarthria [Unknown]
  - Tooth abscess [Not Recovered/Not Resolved]
  - Diarrhoea [Recovered/Resolved]
  - Gastrointestinal disorder [Recovered/Resolved]
  - Abdominal distension [Recovered/Resolved]
  - Product packaging quantity issue [Unknown]
  - Product distribution issue [Unknown]
  - Product leakage [Unknown]
  - Wrong technique in product usage process [Recovered/Resolved]
  - Incorrect dose administered [Recovered/Resolved]
  - Product dose omission issue [Unknown]
  - Device use issue [Unknown]

NARRATIVE: CASE EVENT DATE: 20201124
